FAERS Safety Report 9266010 (Version 2)
Quarter: 2013Q2

REPORT INFORMATION
  Report Type: Spontaneous
  Country: GB (occurrence: GB)
  Receive Date: 20130501
  Receipt Date: 20130521
  Transmission Date: 20140414
  Serious: No
  Sender: FDA-Public Use
  Company Number: GB-WATSON-2013-07955

PATIENT
  Age: 53 Year
  Sex: Male

DRUGS (1)
  1. RAMIPRIL (UNKNOWN) [Suspect]
     Indication: HYPERTENSION
     Dosage: 2 CAPSULES,1.25 MG, BID
     Dates: start: 200905

REACTIONS (3)
  - Abasia [Unknown]
  - Condition aggravated [Unknown]
  - Pain in extremity [Unknown]
